FAERS Safety Report 9148377 (Version 1)
Quarter: 2013Q1

REPORT INFORMATION
  Report Type: Spontaneous
  Country: US (occurrence: None)
  Receive Date: 20130228
  Receipt Date: 20130228
  Transmission Date: 20140127
  Serious: Yes (Life-Threatening, Hospitalization)
  Sender: FDA-Public Use
  Company Number: None

PATIENT
  Age: 31 Year
  Sex: Female
  Weight: 114.3 kg

DRUGS (1)
  1. CLINDAMYCIN [Suspect]
     Indication: RASH VESICULAR
     Route: 048
     Dates: start: 20120912, end: 20120919

REACTIONS (4)
  - Dyspnoea [None]
  - Pharyngeal oedema [None]
  - Local swelling [None]
  - Dysphagia [None]
